FAERS Safety Report 7959727-7 (Version None)
Quarter: 2011Q4

REPORT INFORMATION
  Report Type: 
  Country: None (occurrence: None)
  Receive Date: 20111206
  Receipt Date: 20111128
  Transmission Date: 20120403
  Serious: Yes (Death, Hospitalization)
  Sender: FDA-Public Use
  Company Number: US-GLAXOSMITHKLINE-A0955279A

PATIENT
  Age: 69 Year
  Sex: Female

DRUGS (17)
  1. BUMEX [Concomitant]
  2. SYNTHROID [Concomitant]
  3. FLONASE [Concomitant]
  4. RECLAST [Concomitant]
  5. PREDNISONE TAB [Concomitant]
  6. HYDROCODONE [Concomitant]
  7. CYTOMEL [Concomitant]
  8. ADVAIR DISKUS 100/50 [Suspect]
     Indication: CHRONIC OBSTRUCTIVE PULMONARY DISEASE
     Dosage: 1PUFF TWICE PER DAY
     Route: 055
  9. ALBUTEROL [Concomitant]
  10. AUGMENTIN [Concomitant]
  11. AMBIEN [Concomitant]
  12. PRILOSEC [Concomitant]
  13. TOPROL-XL [Concomitant]
  14. PREMARIN [Concomitant]
  15. LEVAQUIN [Concomitant]
  16. ATIVAN [Concomitant]
  17. FLEXERIL [Concomitant]

REACTIONS (1)
  - DYSPNOEA [None]
